FAERS Safety Report 9698767 (Version 1)
Quarter: 2013Q4

REPORT INFORMATION
  Report Type: Report from Study
  Country: US (occurrence: US)
  Receive Date: 20131120
  Receipt Date: 20131120
  Transmission Date: 20140711
  Serious: Yes (Hospitalization, Other)
  Sender: FDA-Public Use
  Company Number: US-US-EMD SERONO, INC.-7250378

PATIENT
  Sex: Female

DRUGS (3)
  1. REBIF [Suspect]
     Indication: MULTIPLE SCLEROSIS
     Route: 058
     Dates: start: 20090310, end: 2012
  2. REBIF [Suspect]
  3. BACLOFEN [Concomitant]
     Indication: MUSCLE SPASMS

REACTIONS (10)
  - Pneumonia [Recovered/Resolved]
  - Escherichia urinary tract infection [Unknown]
  - Optic neuritis [Recovered/Resolved]
  - Cushingoid [Unknown]
  - Increased appetite [Unknown]
  - Nasopharyngitis [Not Recovered/Not Resolved]
  - Multiple sclerosis relapse [Recovering/Resolving]
  - Depression [Not Recovered/Not Resolved]
  - Hepatic enzyme increased [Not Recovered/Not Resolved]
  - Injection site bruising [Unknown]
